FAERS Safety Report 10322771 (Version 2)
Quarter: 2015Q1

REPORT INFORMATION
  Report Type: Other
  Country: US (occurrence: US)
  Receive Date: 20140720
  Receipt Date: 20150323
  Transmission Date: 20150720
  Serious: Yes (Other)
  Sender: FDA-Public Use
  Company Number: US-GSKPPD-2014GSK036235

PATIENT
  Age: 52 Year
  Sex: Female

DRUGS (5)
  1. CLONIDINE. [Concomitant]
     Active Substance: CLONIDINE
  2. ZAROXOLYN [Concomitant]
     Active Substance: METOLAZONE
  3. AVANDIA [Suspect]
     Active Substance: ROSIGLITAZONE MALEATE
     Indication: DIABETES MELLITUS
     Dosage: DATES OF AVANDIA USE COULD NOT BE CONFIRMED IN RECORDS REVIEWED.
     Route: 048
  4. LASIX [Concomitant]
     Active Substance: FUROSEMIDE
  5. NEURONTIN [Concomitant]
     Active Substance: GABAPENTIN

REACTIONS (1)
  - Cardiac failure congestive [Unknown]

NARRATIVE: CASE EVENT DATE: 20060330
